FAERS Safety Report 15356650 (Version 1)
Quarter: 2018Q3

REPORT INFORMATION
  Report Type: Spontaneous
  Country: US (occurrence: US)
  Receive Date: 20180830
  Receipt Date: 20180830
  Transmission Date: 20181010
  Serious: No
  Sender: FDA-Public Use
  Company Number: None

PATIENT
  Age: 47 Year
  Sex: Female

DRUGS (2)
  1. TACROLIMUS CAP 1MG [Suspect]
     Active Substance: TACROLIMUS
     Indication: PROPHYLAXIS AGAINST TRANSPLANT REJECTION
     Dosage: AFTER 1SR FILL
     Route: 048
     Dates: start: 20171018
  2. MYCOPHENOLIC [Concomitant]
     Active Substance: MYCOPHENOLIC ACID

REACTIONS (2)
  - Renal impairment [None]
  - Immunosuppression [None]

NARRATIVE: CASE EVENT DATE: 20180829
